FAERS Safety Report 5522167-4 (Version None)
Quarter: 2007Q4

REPORT INFORMATION
  Report Type: 
  Country: None (occurrence: None)
  Receive Date: 20071120
  Receipt Date: 20071110
  Transmission Date: 20080405
  Serious: Yes (Other)
  Sender: FDA-Public Use
  Company Number: US-GENENTECH-251381

PATIENT
  Age: 27 Year
  Sex: Female

DRUGS (1)
  1. RAPTIVA [Suspect]
     Indication: PSORIASIS
     Dosage: UNK, UNK
     Dates: start: 20061201

REACTIONS (2)
  - PSORIASIS [None]
  - SYSTEMIC LUPUS ERYTHEMATOSUS [None]
